FAERS Safety Report 5274397-7 (Version None)
Quarter: 2007Q1

REPORT INFORMATION
  Report Type: 
  Country: None (occurrence: None)
  Receive Date: 20070323
  Receipt Date: 20070313
  Transmission Date: 20070707
  Serious: Yes (Other)
  Sender: FDA-Public Use
  Company Number: AU-PFIZER INC-2007010051

PATIENT
  Age: 75 Year
  Sex: Female
  Weight: 66 kg

DRUGS (5)
  1. LIPITOR [Suspect]
     Route: 048
     Dates: start: 20050808, end: 20070202
  2. METOPROLOL SUCCINATE [Concomitant]
     Route: 048
  3. WARFARIN SODIUM [Concomitant]
     Route: 048
  4. ASTRIX [Concomitant]
     Route: 048
  5. NORVASC [Concomitant]
     Route: 048

REACTIONS (2)
  - HEPATITIS C [None]
  - LETHARGY [None]
